FAERS Safety Report 7376561-X (Version None)
Quarter: 2011Q1

REPORT INFORMATION
  Report Type: 
  Country: None (occurrence: None)
  Receive Date: 20110325
  Receipt Date: 20110318
  Transmission Date: 20110831
  Serious: Yes (Death)
  Sender: FDA-Public Use
  Company Number: DE-GENZYME-RENA-1001131

PATIENT
  Sex: Male
  Weight: 69 kg

DRUGS (9)
  1. EPOGEN [Concomitant]
     Indication: PRODUCT USED FOR UNKNOWN INDICATION
  2. CALCITRIOL [Concomitant]
     Indication: VITAMIN D
     Dosage: 0.75 MCG, 3X/W
  3. CALCITRIOL [Concomitant]
     Dosage: 0.75 MCG, QW
  4. CALCIUM ACETATE [Concomitant]
     Indication: BLOOD PHOSPHORUS ABNORMAL
     Dosage: 475 MG, TID
     Route: 065
  5. IRON SUBSITUTION [Concomitant]
     Indication: MINERAL SUPPLEMENTATION
  6. RENVELA [Suspect]
     Dosage: UNK
  7. BETARECEPTOR BLOCKER [Concomitant]
     Indication: PRODUCT USED FOR UNKNOWN INDICATION
  8. CALCITRIOL [Concomitant]
     Dosage: 0.5 MCG, 3X/W
  9. RENVELA [Suspect]
     Indication: HYPERPHOSPHATAEMIA
     Dosage: 1.6 G, QD

REACTIONS (1)
  - DEATH [None]
